FAERS Safety Report 18745727 (Version 1)
Quarter: 2021Q1

REPORT INFORMATION
  Report Type: Spontaneous
  Country: US (occurrence: US)
  Receive Date: 20210114
  Receipt Date: 20210114
  Transmission Date: 20210419
  Serious: Yes (Other)
  Sender: FDA-Public Use
  Company Number: None

PATIENT
  Age: 73 Year
  Sex: Female
  Weight: 95.4 kg

DRUGS (13)
  1. PANTOPRAZOLE [Concomitant]
     Active Substance: PANTOPRAZOLE
     Dates: start: 20210106
  2. ONDANSETRON [Concomitant]
     Active Substance: ONDANSETRON
     Dates: start: 20210110, end: 20210110
  3. ACETAMINOPHEN. [Concomitant]
     Active Substance: ACETAMINOPHEN
     Dates: start: 20210110, end: 20210110
  4. HEPARIN [Concomitant]
     Active Substance: HEPARIN SODIUM
     Dates: start: 20210106
  5. ASPIRIN. [Concomitant]
     Active Substance: ASPIRIN
     Dates: start: 20210106
  6. REMDESIVIR. [Suspect]
     Active Substance: REMDESIVIR
     Indication: COVID-19
     Route: 042
     Dates: start: 20210111, end: 20210113
  7. SEVELEMER [Concomitant]
     Dates: start: 20210106
  8. METOPROLOL. [Concomitant]
     Active Substance: METOPROLOL
     Dates: start: 20210106
  9. SILDENAPHIL [Concomitant]
     Dates: start: 20210106
  10. INSULIN GLARGINE [Concomitant]
     Active Substance: INSULIN GLARGINE
     Dates: start: 20210111
  11. DEXAMETHASONE. [Concomitant]
     Active Substance: DEXAMETHASONE
     Dates: start: 20210110
  12. LEVOTHYROXINE. [Concomitant]
     Active Substance: LEVOTHYROXINE
     Dates: start: 20210106
  13. DOCUSATE [Concomitant]
     Active Substance: DOCUSATE
     Dates: start: 20210106

REACTIONS (4)
  - Rash erythematous [None]
  - Rash [None]
  - Intentional product use issue [None]
  - Pruritus [None]

NARRATIVE: CASE EVENT DATE: 20210114
